FAERS Safety Report 10732493 (Version 2)
Quarter: 2015Q1

REPORT INFORMATION
  Report Type: Spontaneous
  Country: US (occurrence: US)
  Receive Date: 20150123
  Receipt Date: 20150225
  Transmission Date: 20150721
  Serious: Yes (Death, Life-Threatening, Hospitalization)
  Sender: FDA-Public Use
  Company Number: US-MALLINCKRODT-T201500850

PATIENT
  Age: 70 Year
  Sex: Female

DRUGS (1)
  1. OFIRMEV [Suspect]
     Active Substance: ACETAMINOPHEN
     Indication: PROCEDURAL PAIN
     Route: 065

REACTIONS (5)
  - Hypotension [Unknown]
  - Anastomotic leak [Fatal]
  - Toxicity to various agents [Fatal]
  - Hepatic enzyme increased [Unknown]
  - Sepsis [Fatal]

NARRATIVE: CASE EVENT DATE: 2014
